FAERS Safety Report 22537152 (Version 2)
Quarter: 2023Q2

REPORT INFORMATION
  Report Type: Spontaneous
  Country: US (occurrence: US)
  Receive Date: 20230608
  Receipt Date: 20230619
  Transmission Date: 20230722
  Serious: Yes (Life-Threatening, Hospitalization)
  Sender: FDA-Public Use
  Company Number: US-TEVA-2023-US-2893799

PATIENT
  Age: 3 Year
  Sex: Male

DRUGS (2)
  1. FENTANYL [Suspect]
     Active Substance: FENTANYL
     Indication: Overdose
     Route: 065
  2. NALOXONE [Suspect]
     Active Substance: NALOXONE
     Indication: Overdose
     Dosage: 0.1 MG/KG
     Route: 042

REACTIONS (3)
  - Pulmonary oedema [Recovering/Resolving]
  - Hypoxia [Recovering/Resolving]
  - Overdose [Unknown]
